FAERS Safety Report 13508974 (Version 1)
Quarter: 2017Q2

REPORT INFORMATION
  Report Type: Spontaneous
  Country: US (occurrence: US)
  Receive Date: 20170503
  Receipt Date: 20170503
  Transmission Date: 20170830
  Serious: Yes (Hospitalization)
  Sender: FDA-Public Use
  Company Number: US-WEST-WARD PHARMACEUTICALS CORP.-US-H14001-17-01231

PATIENT

DRUGS (1)
  1. OXYCODONE [Suspect]
     Active Substance: OXYCODONE
     Indication: SUICIDE ATTEMPT
     Dosage: INGESTED HIGH DOSES OF OXYCODONE
     Route: 048

REACTIONS (11)
  - Apathy [Unknown]
  - Respiratory arrest [Unknown]
  - Amnesia [Unknown]
  - Ischaemia [Unknown]
  - Depressed level of consciousness [Unknown]
  - Neuropsychiatric syndrome [Unknown]
  - Memory impairment [Unknown]
  - Cardiac arrest [Unknown]
  - Confusional state [Unknown]
  - Disturbance in attention [Unknown]
  - Intentional overdose [Unknown]

NARRATIVE: CASE EVENT DATE: 201308
